FAERS Safety Report 14417395 (Version 1)
Quarter: 2018Q1

REPORT INFORMATION
  Report Type: Report from Study
  Country: None (occurrence: GB)
  Receive Date: 20180122
  Receipt Date: 20180122
  Transmission Date: 20180509
  Serious: Yes (Hospitalization)
  Sender: FDA-Public Use
  Company Number: GB-BIOVITRUM-2018GB0039

PATIENT
  Age: 15 Year
  Sex: Female

DRUGS (6)
  1. ORFADIN [Suspect]
     Active Substance: NITISINONE
     Indication: TYROSINAEMIA
     Dates: start: 20160329
  2. SALBUTAMOL [Concomitant]
     Active Substance: ALBUTEROL
     Indication: ASTHMA
     Dosage: MICROG AS REQUIRED
     Dates: start: 20150101
  3. TYR COOLER [Concomitant]
     Indication: TYROSINAEMIA
     Dosage: 60G PE
     Dates: start: 20150101
  4. MONTELUKAST [Concomitant]
     Active Substance: MONTELUKAST SODIUM
     Indication: ASTHMA
     Route: 048
     Dates: start: 20150101
  5. SERETIDE [Concomitant]
     Active Substance: FLUTICASONE PROPIONATE\SALMETEROL XINAFOATE
     Indication: ASTHMA
     Dosage: MICROG AS REQUIRED
     Dates: start: 20150101
  6. LORATADINE. [Concomitant]
     Active Substance: LORATADINE
     Indication: SEASONAL ALLERGY
     Dosage: 10-20 MG AS REQUIRED
     Route: 048
     Dates: start: 20160201

REACTIONS (2)
  - Pancreatitis [Not Recovered/Not Resolved]
  - Pseudocyst [Not Recovered/Not Resolved]

NARRATIVE: CASE EVENT DATE: 20171128
